FAERS Safety Report 9025348 (Version 1)
Quarter: 2012Q4

REPORT INFORMATION
  Report Type: 
  Country: FR (occurrence: FR)
  Receive Date: 20121211
  Receipt Date: 20121211
  Transmission Date: 20130627
  Serious: Yes (Life-Threatening, Hospitalization, Other)
  Sender: FDA-Public Use
  Company Number: PHHY2012FR083592

PATIENT
  Age: 73 Year
  Sex: Female

DRUGS (12)
  1. LEPONEX [Suspect]
     Indication: BIPOLAR I DISORDER
     Dosage: 12.5 mg, QD
     Route: 048
     Dates: start: 20120620
  2. LEPONEX [Suspect]
     Dosage: 25 mg, QD
     Route: 048
     Dates: end: 20120705
  3. DEPAMIDE [Concomitant]
  4. NOCTAMID [Concomitant]
  5. TEMESTA [Concomitant]
  6. COUMADINE [Concomitant]
  7. INIPOMP [Concomitant]
  8. LEVOTHYROX [Concomitant]
  9. CARDENSIEL [Concomitant]
  10. DUPHALAC [Concomitant]
  11. DAFALGAN [Concomitant]
     Dosage: UNK UKN, UNK
  12. CALCIDOSE [Concomitant]

REACTIONS (10)
  - Myocarditis [Recovered/Resolved]
  - Troponin increased [Recovered/Resolved]
  - Blood creatine phosphokinase increased [Recovered/Resolved]
  - Brain natriuretic peptide increased [Recovered/Resolved]
  - Pyrexia [Recovered/Resolved]
  - Hypotension [Recovered/Resolved]
  - Neuroleptic malignant syndrome [Recovered/Resolved]
  - Fall [Recovered/Resolved]
  - Craniocerebral injury [Unknown]
  - Confusional state [Recovered/Resolved]
